FAERS Safety Report 7943378-4 (Version None)
Quarter: 2011Q4

REPORT INFORMATION
  Report Type: 
  Country: None (occurrence: None)
  Receive Date: 20111128
  Receipt Date: 20110303
  Transmission Date: 20120403
  Serious: No
  Sender: FDA-Public Use
  Company Number: US-COVIDIEN/TYCO HEALTHCARE/MALLINCKRODT-T201100551

PATIENT
  Sex: Male

DRUGS (1)
  1. ULTRA-TECHNEKOW [Suspect]
     Dosage: UNK
     Dates: start: 20110303, end: 20110303

REACTIONS (1)
  - INJURY ASSOCIATED WITH DEVICE [None]
